FAERS Safety Report 22145878 (Version 3)
Quarter: 2023Q2

REPORT INFORMATION
  Report Type: Report from Study
  Country: CA (occurrence: CA)
  Receive Date: 20230328
  Receipt Date: 20230516
  Transmission Date: 20230722
  Serious: Yes (Other)
  Sender: FDA-Public Use
  Company Number: CA-002147023-NVSC2023CA066746

PATIENT
  Age: 61 Year
  Sex: Female

DRUGS (8)
  1. ILARIS [Suspect]
     Active Substance: CANAKINUMAB
     Indication: Cryopyrin associated periodic syndrome
     Dosage: 150 MG, EVERY 8 WEEKS
     Route: 058
     Dates: start: 20220930
  2. ILARIS [Suspect]
     Active Substance: CANAKINUMAB
     Dosage: 150 MG, EVERY 6 WEEKS
     Route: 058
     Dates: start: 20230403
  3. NAPROXEN [Concomitant]
     Active Substance: NAPROXEN
     Indication: Product used for unknown indication
     Dosage: UNK
     Route: 065
     Dates: start: 20180704
  4. MOMETASONE [Concomitant]
     Active Substance: MOMETASONE
     Indication: Product used for unknown indication
     Dosage: UNK
     Route: 065
     Dates: start: 20180404
  5. TYLENOL [Concomitant]
     Active Substance: ACETAMINOPHEN
     Indication: Product used for unknown indication
     Dosage: UNK
     Route: 065
  6. TYLENOL [Concomitant]
     Active Substance: ACETAMINOPHEN
     Dosage: UNK
     Route: 065
  7. KINERET [Concomitant]
     Active Substance: ANAKINRA
     Indication: Product used for unknown indication
     Dosage: UNK
     Route: 065
  8. KINERET [Concomitant]
     Active Substance: ANAKINRA
     Dosage: UNK, QD (STRENGTH: 150 MG)
     Route: 065
     Dates: start: 201903

REACTIONS (8)
  - Syncope [Recovered/Resolved]
  - Syncope [Recovering/Resolving]
  - Hypotension [Recovering/Resolving]
  - Contusion [Recovering/Resolving]
  - Hyperhidrosis [Recovered/Resolved]
  - Hyperhidrosis [Recovering/Resolving]
  - Vein collapse [Unknown]
  - Inappropriate schedule of product administration [Unknown]

NARRATIVE: CASE EVENT DATE: 20230320
